FAERS Safety Report 6039869-6 (Version None)
Quarter: 2009Q1

REPORT INFORMATION
  Report Type: 
  Country: None (occurrence: None)
  Receive Date: 20090116
  Receipt Date: 20090106
  Transmission Date: 20090719
  Serious: Yes (Other)
  Sender: FDA-Public Use
  Company Number: US-CELGENEUS-163-21880-09010197

PATIENT
  Sex: Male
  Weight: 89 kg

DRUGS (1)
  1. REVLIMID [Suspect]
     Route: 048
     Dates: start: 20080915, end: 20090105

REACTIONS (1)
  - ANAEMIA HAEMOLYTIC AUTOIMMUNE [None]
